FAERS Safety Report 5225124-0 (Version None)
Quarter: 2007Q1

REPORT INFORMATION
  Report Type: 
  Country: None (occurrence: None)
  Receive Date: 20070131
  Receipt Date: 20070126
  Transmission Date: 20070707
  Serious: Yes (Disabling, Other)
  Sender: FDA-Public Use
  Company Number: JP-ELI_LILLY_AND_COMPANY-JP200612000728

PATIENT
  Age: 77 Year
  Sex: Female
  Weight: 54 kg

DRUGS (9)
  1. RALOXIFENE HCL [Suspect]
     Indication: OSTEOPOROSIS POSTMENOPAUSAL
     Dosage: 60 MG, DAILY (1/D)
     Route: 048
     Dates: start: 20050509
  2. NEUROTROPIN [Concomitant]
     Indication: BACK PAIN
     Dosage: 4 D/F, DAILY (1/D)
     Route: 048
     Dates: start: 20040928
  3. GOREI-SAN [Concomitant]
     Indication: OEDEMA PERIPHERAL
     Dosage: 7.5 G, DAILY (1/D)
     Route: 048
     Dates: start: 20050804, end: 20060226
  4. NORVASC [Concomitant]
     Indication: HYPERTENSION
     Dosage: 5 MG, DAILY (1/D)
     Route: 048
  5. ASPIRIN [Concomitant]
     Indication: TRANSIENT ISCHAEMIC ATTACK
     Dosage: 100 MG, DAILY (1/D)
     Route: 048
     Dates: start: 20050228
  6. TAKEPRON [Concomitant]
     Indication: REFLUX OESOPHAGITIS
     Dosage: 15 MG, DAILY (1/D)
     Route: 048
     Dates: start: 20040717
  7. LIPITOR [Concomitant]
     Indication: HYPERCHOLESTEROLAEMIA
     Dosage: 5 MG, DAILY (1/D)
     Route: 048
     Dates: start: 20050228
  8. ELCITONIN [Concomitant]
     Indication: OSTEOPOROSIS POSTMENOPAUSAL
     Dosage: 20 U, WEEKLY (1/W)
     Route: 030
     Dates: start: 20060123, end: 20060724
  9. BOUIOUGITOU [Concomitant]
     Indication: OEDEMA PERIPHERAL
     Dosage: 7.5 G, DAILY (1/D)
     Route: 048
     Dates: start: 20060313, end: 20061105

REACTIONS (2)
  - ATRIOVENTRICULAR BLOCK [None]
  - SPINAL COMPRESSION FRACTURE [None]
